FAERS Safety Report 5834335-2 (Version None)
Quarter: 2008Q3

REPORT INFORMATION
  Report Type: 
  Country: None (occurrence: None)
  Receive Date: 20080731
  Receipt Date: 20080718
  Transmission Date: 20090109
  Serious: Yes (Other)
  Sender: FDA-Public Use
  Company Number: 236840J08USA

PATIENT
  Age: 49 Year
  Sex: Female
  Weight: 72.5755 kg

DRUGS (9)
  1. REBIF [Suspect]
     Indication: MULTIPLE SCLEROSIS
     Dosage: 44 MCG, 3 IN 1 WEEKS, SUBCUTANEOUS
     Route: 058
     Dates: start: 20070627
  2. TOPAMAX [Concomitant]
  3. PREVACID (LANSOPRZOLE) [Concomitant]
  4. LASIX (FUROSEMIDE /00032601/) [Concomitant]
  5. POTASSIUM (POTASSIUM /00031401/) [Concomitant]
  6. XANAX [Concomitant]
  7. TRICOR [Concomitant]
  8. UNSPECIFIED MEDICATION (OTHER CHOLESTEROL AND TRIGLYCERIDE REDUCERS) [Concomitant]
  9. UNSPECIFIED MEDICATION (ALL OTHE THERAPEUTIC PRODUCTS) [Concomitant]

REACTIONS (8)
  - CONVULSION [None]
  - DEATH OF RELATIVE [None]
  - HEADACHE [None]
  - LOCALISED INTRAABDOMINAL FLUID COLLECTION [None]
  - PAIN IN EXTREMITY [None]
  - SINUSITIS [None]
  - STRESS [None]
  - TREMOR [None]
